FAERS Safety Report 9775265 (Version 2)
Quarter: 2014Q1

REPORT INFORMATION
  Report Type: Spontaneous
  Country: US (occurrence: US)
  Receive Date: 20131220
  Receipt Date: 20140116
  Transmission Date: 20141002
  Serious: No
  Sender: FDA-Public Use
  Company Number: US-GILEAD-2013-0090165

PATIENT
  Age: 40 Year
  Sex: Female

DRUGS (4)
  1. LETAIRIS [Suspect]
     Indication: PULMONARY ARTERIAL HYPERTENSION
     Dosage: 10 MG, QD
     Route: 065
     Dates: start: 20130723
  2. LETAIRIS [Suspect]
     Indication: PULMONARY EMBOLISM
  3. REMODULIN [Concomitant]
     Indication: PRODUCT USED FOR UNKNOWN INDICATION
  4. COUMADIN                           /00014802/ [Concomitant]
     Indication: PULMONARY EMBOLISM

REACTIONS (2)
  - Pain in extremity [Recovered/Resolved]
  - Upper extremity mass [Unknown]
